FAERS Safety Report 18691428 (Version 2)
Quarter: 2021Q1

REPORT INFORMATION
  Report Type: Spontaneous
  Country: US (occurrence: US)
  Receive Date: 20210101
  Receipt Date: 20210126
  Transmission Date: 20210419
  Serious: No
  Sender: FDA-Public Use
  Company Number: US-ALKERMES INC.-ALK-2020-005856

PATIENT
  Age: 33 Year
  Sex: Male

DRUGS (1)
  1. NO COMPANY PRODUCT [Suspect]
     Active Substance: UNSPECIFIED INGREDIENT
     Indication: PRODUCT USED FOR UNKNOWN INDICATION
     Dosage: NO DRUG ADMINISTERED

REACTIONS (6)
  - Muscle spasms [Unknown]
  - Fatigue [Unknown]
  - Pain [Unknown]
  - Substance abuse [Unknown]
  - Myalgia [Unknown]
  - Asthenia [Unknown]

NARRATIVE: CASE EVENT DATE: 20201221
